FAERS Safety Report 10029819 (Version 3)
Quarter: 2014Q4

REPORT INFORMATION
  Report Type: Spontaneous
  Country: US (occurrence: None)
  Receive Date: 20140320
  Receipt Date: 20141008
  Transmission Date: 20150528
  Serious: Yes (Hospitalization)
  Sender: FDA-Public Use
  Company Number: UTC-045950

PATIENT
  Age: 24 Year
  Sex: Female
  Weight: 67.1 kg

DRUGS (2)
  1. REMODULIN [Suspect]
     Active Substance: TREPROSTINIL
     Indication: PULMONARY ARTERIAL HYPERTENSION
     Dosage: (0.108 UG/KG, 1 IN 1 MIN)
     Route: 041
     Dates: start: 20120119
  2. COUMADIN [Concomitant]
     Active Substance: WARFARIN SODIUM

REACTIONS (2)
  - Pneumothorax [None]
  - Atelectasis [None]

NARRATIVE: CASE EVENT DATE: 20140304
